FAERS Safety Report 22015698 (Version 1)
Quarter: 2023Q1

REPORT INFORMATION
  Report Type: Report from Study
  Country: CA (occurrence: CA)
  Receive Date: 20230221
  Receipt Date: 20230221
  Transmission Date: 20230418
  Serious: Yes (Other)
  Sender: FDA-Public Use
  Company Number: CA-GLAXOSMITHKLINE-CA2023AMR026457

PATIENT

DRUGS (1)
  1. MEPOLIZUMAB [Suspect]
     Active Substance: MEPOLIZUMAB
     Indication: Asthma
     Dosage: 100 MG, Z EVERY 4 WEEKS
     Route: 058
     Dates: start: 20220610

REACTIONS (7)
  - Blindness [Unknown]
  - Urticaria [Unknown]
  - Rash pruritic [Unknown]
  - Muscular weakness [Unknown]
  - Tendonitis [Unknown]
  - Sciatica [Unknown]
  - Diplopia [Unknown]
